FAERS Safety Report 7417851-1 (Version None)
Quarter: 2011Q2

REPORT INFORMATION
  Report Type: 
  Country: None (occurrence: None)
  Receive Date: 20110415
  Receipt Date: 20110411
  Transmission Date: 20111010
  Serious: Yes (Other)
  Sender: FDA-Public Use
  Company Number: DE-PFIZER INC-2011079303

PATIENT
  Sex: Female

DRUGS (1)
  1. AROMASIN [Suspect]
     Dosage: UNK

REACTIONS (4)
  - BLOOD GLUCOSE ABNORMAL [None]
  - MENOPAUSAL SYMPTOMS [None]
  - BLOOD TRIGLYCERIDES ABNORMAL [None]
  - BLOOD COUNT ABNORMAL [None]
